FAERS Safety Report 4438699-6 (Version None)
Quarter: 2004Q3

REPORT INFORMATION
  Report Type: 
  Country: None (occurrence: None)
  Receive Date: 20040830
  Receipt Date: 20040816
  Transmission Date: 20050211
  Serious: Yes (Other)
  Sender: FDA-Public Use
  Company Number: 2004056464

PATIENT
  Age: 85 Year
  Sex: Male

DRUGS (2)
  1. LIPITOR [Suspect]
     Indication: ILL-DEFINED DISORDER
  2. ARTHROTEC [Suspect]
     Indication: SPINAL LAMINECTOMY
     Dosage: 75 MG (75 MG, 1 IN 1 D), ORAL
     Route: 048

REACTIONS (1)
  - SPINAL LAMINECTOMY [None]
